FAERS Safety Report 13300939 (Version 1)
Quarter: 2017Q1

REPORT INFORMATION
  Report Type: Spontaneous
  Country: US (occurrence: US)
  Receive Date: 20170306
  Receipt Date: 20170306
  Transmission Date: 20170428
  Serious: No
  Sender: FDA-Public Use
  Company Number: None

PATIENT
  Age: 49 Year
  Sex: Female
  Weight: 54 kg

DRUGS (1)
  1. STELARA [Suspect]
     Active Substance: USTEKINUMAB
     Dosage: OTHER FREQUENCY:EVERY 12 WEEKS;?
     Route: 058
     Dates: start: 20161202

REACTIONS (3)
  - Drug ineffective [None]
  - Abdominal distension [None]
  - Weight increased [None]

NARRATIVE: CASE EVENT DATE: 20170306
